FAERS Safety Report 10053134 (Version 3)
Quarter: 2014Q2

REPORT INFORMATION
  Report Type: Spontaneous
  Country: AU (occurrence: AU)
  Receive Date: 20140402
  Receipt Date: 20140410
  Transmission Date: 20141212
  Serious: Yes (Other)
  Sender: FDA-Public Use
  Company Number: PHHY2014AU025867

PATIENT
  Age: 71 Year
  Sex: Male

DRUGS (4)
  1. EXJADE [Suspect]
     Indication: MYELODYSPLASTIC SYNDROME
     Dosage: 500 MG, DAILY
     Route: 048
  2. EXJADE [Suspect]
     Dosage: UNK UKN, UNK
     Route: 048
  3. COVERSYL [Concomitant]
     Indication: HYPERTENSION
     Dosage: 5 UG, UNK
     Route: 048
     Dates: start: 2011
  4. ASPIRIN [Concomitant]
     Dosage: 100 MG, QD
     Dates: start: 2000

REACTIONS (7)
  - Hypersplenism [Unknown]
  - Fibrosis [Unknown]
  - Sinus disorder [Unknown]
  - Nephritis [Unknown]
  - Influenza [Unknown]
  - Nasopharyngitis [Unknown]
  - Pollakiuria [Unknown]
